FAERS Safety Report 25512308 (Version 1)
Quarter: 2025Q3

REPORT INFORMATION
  Report Type: Other
  Country: CN (occurrence: CN)
  Receive Date: 20250703
  Receipt Date: 20250703
  Transmission Date: 20251021
  Serious: Yes (Other)
  Sender: PRASCO
  Company Number: CN-Prasco Laboratories-PRAS20250269

PATIENT

DRUGS (3)
  1. DEXAMETHASONE [Suspect]
     Active Substance: DEXAMETHASONE
     Indication: Meniere^s disease
     Route: 050
  2. BETAHISTINE [Concomitant]
     Active Substance: BETAHISTINE
  3. METHYLCOBALAMIN [Concomitant]
     Active Substance: METHYLCOBALAMIN
     Route: 048

REACTIONS (2)
  - Aspergillus infection [Recovered/Resolved]
  - Otitis externa fungal [Recovered/Resolved]
